FAERS Safety Report 12419577 (Version 5)
Quarter: 2016Q2

REPORT INFORMATION
  Report Type: Spontaneous
  Country: US (occurrence: US)
  Receive Date: 20160531
  Receipt Date: 20160629
  Transmission Date: 20160815
  Serious: Yes (Other)
  Sender: FDA-Public Use
  Company Number: US-CELGENEUS-USA-2016053855

PATIENT
  Age: 64 Year
  Sex: Female

DRUGS (2)
  1. ADVIL [Concomitant]
     Active Substance: IBUPROFEN
     Indication: PRODUCT USED FOR UNKNOWN INDICATION
     Route: 065
  2. OTEZLA [Suspect]
     Active Substance: APREMILAST
     Indication: PSORIASIS
     Dosage: 60 MILLIGRAM
     Route: 048
     Dates: start: 20160402

REACTIONS (9)
  - Cystitis [Unknown]
  - Weight decreased [Unknown]
  - Headache [Recovering/Resolving]
  - Sinus headache [Recovering/Resolving]
  - Neck pain [Recovering/Resolving]
  - Haemorrhoidal haemorrhage [Unknown]
  - Frequent bowel movements [Recovering/Resolving]
  - Nausea [Unknown]
  - Decreased appetite [Unknown]

NARRATIVE: CASE EVENT DATE: 20160404
